FAERS Safety Report 8839268 (Version 2)
Quarter: 2013Q4

REPORT INFORMATION
  Report Type: Spontaneous
  Country: TR (occurrence: TR)
  Receive Date: 20121015
  Receipt Date: 20131017
  Transmission Date: 20140711
  Serious: Yes (Hospitalization, Other)
  Sender: FDA-Public Use
  Company Number: TR-AMGEN-TURSP2012065320

PATIENT
  Age: 46 Year
  Sex: Female

DRUGS (2)
  1. ENBREL [Suspect]
     Indication: ANKYLOSING SPONDYLITIS
     Dosage: 25 MG, WEEKLY
     Route: 058
     Dates: start: 20110809, end: 20121004
  2. ENBREL [Suspect]
     Dosage: 25 MG, WEEKLY
     Route: 058
     Dates: end: 201308

REACTIONS (3)
  - Nephrolithiasis [Not Recovered/Not Resolved]
  - Drug ineffective [Recovered/Resolved]
  - Urinary tract infection [Not Recovered/Not Resolved]
